FAERS Safety Report 24706848 (Version 1)
Quarter: 2024Q4

REPORT INFORMATION
  Report Type: Spontaneous
  Country: US (occurrence: US)
  Receive Date: 20241206
  Receipt Date: 20241206
  Transmission Date: 20250115
  Serious: Yes (Other)
  Sender: PFIZER
  Company Number: US-PFIZER INC-PV202400156843

PATIENT
  Age: 33 Year
  Sex: Female

DRUGS (2)
  1. SOLU-MEDROL [Suspect]
     Active Substance: METHYLPREDNISOLONE SODIUM SUCCINATE
     Indication: Glomerulonephritis minimal lesion
     Dosage: UNK
  2. PREDNISONE [Suspect]
     Active Substance: PREDNISONE
     Indication: Glomerulonephritis minimal lesion
     Dosage: UNK

REACTIONS (3)
  - Blood creatinine increased [Unknown]
  - Drug ineffective for unapproved indication [Unknown]
  - Off label use [Unknown]
